FAERS Safety Report 6164875-0 (Version None)
Quarter: 2009Q2

REPORT INFORMATION
  Report Type: 
  Country: None (occurrence: None)
  Receive Date: 20090423
  Receipt Date: 20090420
  Transmission Date: 20091009
  Serious: Yes (Death)
  Sender: FDA-Public Use
  Company Number: GB-ASTRAZENECA-2009AC01102

PATIENT
  Sex: Female

DRUGS (3)
  1. GOSERELIN [Suspect]
     Route: 064
  2. TAMOXIFEN CITRATE [Suspect]
     Route: 064
  3. HERCEPTIN [Suspect]
     Route: 064

REACTIONS (1)
  - PULMONARY HYPOPLASIA [None]
